FAERS Safety Report 21025151 (Version 2)
Quarter: 2024Q1

REPORT INFORMATION
  Report Type: Spontaneous
  Country: US (occurrence: US)
  Receive Date: 20220630
  Receipt Date: 20240202
  Transmission Date: 20240410
  Serious: Yes (Other)
  Sender: FDA-Public Use
  Company Number: US-CELLTRION INC.-2022US010072

PATIENT

DRUGS (1)
  1. INFLECTRA [Suspect]
     Active Substance: INFLIXIMAB-DYYB
     Indication: Product used for unknown indication

REACTIONS (5)
  - Ankylosing spondylitis [Unknown]
  - Nerve compression [Unknown]
  - Loss of personal independence in daily activities [Unknown]
  - Pain [Unknown]
  - Therapy interrupted [Unknown]
